FAERS Safety Report 4713489-5 (Version None)
Quarter: 2005Q3

REPORT INFORMATION
  Report Type: 
  Country: None (occurrence: None)
  Receive Date: 20050711
  Receipt Date: 20050602
  Transmission Date: 20060218
  Serious: Yes (Hospitalization)
  Sender: FDA-Public Use
  Company Number: CH 2005 0007

PATIENT
  Age: 23 Year
  Sex: Female

DRUGS (2)
  1. DOTREM                               MEGLUMINE GADOTERATE [Suspect]
     Dosage: 2 ML PER DAY INTRA-ARTICULAR
     Route: 014
     Dates: start: 20050421, end: 20050421
  2. IOPAMIDOL [Suspect]
     Indication: ARTHROGRAM
     Dosage: 1 ML PER DAY INTRA-ARTICULAR
     Route: 014
     Dates: start: 20050421, end: 20050421

REACTIONS (3)
  - CHILLS [None]
  - MEDICATION ERROR [None]
  - PYREXIA [None]
